FAERS Safety Report 23586858 (Version 2)
Quarter: 2024Q3

REPORT INFORMATION
  Report Type: Spontaneous
  Country: US (occurrence: US)
  Receive Date: 20240301
  Receipt Date: 20240912
  Transmission Date: 20241017
  Serious: Yes (Other)
  Sender: PFIZER
  Company Number: US-PFIZER INC-202400053427

PATIENT
  Age: 32 Year
  Sex: Female
  Weight: 95.25 kg

DRUGS (5)
  1. OXBRYTA [Suspect]
     Active Substance: VOXELOTOR
     Indication: Sickle cell anaemia
     Dosage: 500 MG, 3 TABLETS, ONCE DAILY
     Route: 048
     Dates: start: 20211012
  2. OXBRYTA [Suspect]
     Active Substance: VOXELOTOR
     Dosage: THREE TABLETS AND EACH OF THOSE TABLETS WERE 500MG
     Route: 048
  3. HYDROXYUREA [Concomitant]
     Active Substance: HYDROXYUREA
     Indication: Sickle cell anaemia
     Dosage: 500MG, ONCE A DAY
  4. FOLIC ACID [Concomitant]
     Active Substance: FOLIC ACID
     Indication: Sickle cell anaemia
     Dosage: 1MG, ONCE A DAY
  5. VITAMIN D NOS [Concomitant]
     Active Substance: CHOLECALCIFEROL\ERGOCALCIFEROL
     Indication: Vitamin D deficiency
     Dosage: UNK

REACTIONS (3)
  - Sickle cell anaemia with crisis [Unknown]
  - Gastrointestinal disorder [Unknown]
  - Abdominal pain [Unknown]
